FAERS Safety Report 15488156 (Version 3)
Quarter: 2019Q3

REPORT INFORMATION
  Report Type: Spontaneous
  Country: SE (occurrence: SE)
  Receive Date: 20181011
  Receipt Date: 20190924
  Transmission Date: 20191004
  Serious: Yes (Other)
  Sender: FDA-Public Use
  Company Number: SE-IPSEN BIOPHARMACEUTICALS, INC.-2018-15496

PATIENT
  Age: 43 Year
  Sex: Female

DRUGS (5)
  1. AZZALURE [Suspect]
     Active Substance: BOTULINUM TOXIN TYPE A
     Indication: SKIN WRINKLING
     Dosage: 80 S.U
     Route: 030
     Dates: start: 20180904, end: 20180904
  2. JUVEDERM ULTRA SMILE [Concomitant]
     Dates: start: 20180904, end: 20180904
  3. AZZALURE [Suspect]
     Active Substance: BOTULINUM TOXIN TYPE A
     Indication: SKIN WRINKLING
  4. ALLERGAN [Concomitant]
     Active Substance: PAPAIN
  5. PULMICORT TURBUHALER [Concomitant]
     Active Substance: BUDESONIDE
     Indication: ASTHMA

REACTIONS (14)
  - Feeling hot [Recovered/Resolved]
  - Hypoaesthesia [Recovered/Resolved]
  - Fatigue [Recovering/Resolving]
  - Dry eye [Recovered/Resolved]
  - Vision blurred [Recovering/Resolving]
  - Eyelid ptosis [Recovering/Resolving]
  - Headache [Recovering/Resolving]
  - Pruritus [Recovering/Resolving]
  - Eye disorder [Recovering/Resolving]
  - Paraesthesia [Unknown]
  - Dry mouth [Recovered/Resolved]
  - Ear discomfort [Recovered/Resolved]
  - Fatigue [Recovered/Resolved]
  - Headache [Recovered/Resolved]

NARRATIVE: CASE EVENT DATE: 20180913
